FAERS Safety Report 16837506 (Version 2)
Quarter: 2020Q2

REPORT INFORMATION
  Report Type: Report from Study
  Country: None (occurrence: US)
  Receive Date: 20190923
  Receipt Date: 20200409
  Transmission Date: 20200713
  Serious: Yes (Other)
  Sender: FDA-Public Use
  Company Number: US-ABBVIE-19K-163-2790731-00

PATIENT
  Sex: Female

DRUGS (2)
  1. HUMIRA [Suspect]
     Active Substance: ADALIMUMAB
     Route: 058
     Dates: start: 20190515
  2. HUMIRA [Suspect]
     Active Substance: ADALIMUMAB
     Indication: RHEUMATOID ARTHRITIS
     Dosage: CF
     Route: 058
     Dates: end: 20181213

REACTIONS (18)
  - Ear infection [Recovered/Resolved]
  - Upper respiratory tract infection [Unknown]
  - Urinary tract infection bacterial [Recovering/Resolving]
  - Upper respiratory tract infection [Recovered/Resolved]
  - Pharyngitis [Unknown]
  - Facial paralysis [Unknown]
  - Facial paralysis [Recovered/Resolved]
  - Nephrolithiasis [Recovered/Resolved]
  - Influenza [Recovered/Resolved]
  - Pharyngitis [Recovered/Resolved]
  - Joint range of motion decreased [Not Recovered/Not Resolved]
  - Rheumatoid arthritis [Unknown]
  - Urinary tract infection [Unknown]
  - Stress [Unknown]
  - Urinary tract obstruction [Recovered/Resolved]
  - Pain in extremity [Not Recovered/Not Resolved]
  - Mobility decreased [Not Recovered/Not Resolved]
  - Nephrolithiasis [Not Recovered/Not Resolved]

NARRATIVE: CASE EVENT DATE: 2018
